FAERS Safety Report 8146355-6 (Version None)
Quarter: 2012Q1

REPORT INFORMATION
  Report Type: 
  Country: None (occurrence: None)
  Receive Date: 20120217
  Receipt Date: 20111223
  Transmission Date: 20120608
  Serious: No
  Sender: FDA-Public Use
  Company Number: US-ABBOTT-11P-163-0886545-00

PATIENT
  Sex: Male
  Weight: 106.24 kg

DRUGS (4)
  1. SIMCOR [Suspect]
     Indication: BLOOD CHOLESTEROL ABNORMAL
     Dosage: IN THE MORNING
     Route: 048
     Dates: start: 20080101
  2. SIMCOR [Suspect]
     Dosage: IN THE MORNING
     Route: 048
  3. LISINOPRIL [Concomitant]
     Indication: PRODUCT USED FOR UNKNOWN INDICATION
     Route: 048
  4. ASPIRIN [Concomitant]
     Indication: PRODUCT USED FOR UNKNOWN INDICATION
     Dosage: IN THE MORNING
     Route: 048

REACTIONS (6)
  - PRURITUS [None]
  - GENERALISED ERYTHEMA [None]
  - PARAESTHESIA [None]
  - PAIN IN EXTREMITY [None]
  - FLUSHING [None]
  - TINNITUS [None]
